FAERS Safety Report 5725699-9 (Version None)
Quarter: 2008Q2

REPORT INFORMATION
  Report Type: 
  Country: None (occurrence: None)
  Receive Date: 20080429
  Receipt Date: 20080416
  Transmission Date: 20081010
  Serious: Yes (Hospitalization)
  Sender: FDA-Public Use
  Company Number: 02100-JPN-07-0780

PATIENT
  Age: 80 Year
  Sex: Female

DRUGS (8)
  1. PLETAL [Suspect]
     Indication: CEREBRAL INFARCTION
     Dosage: 100 MG, BID ORAL
     Route: 048
     Dates: start: 20040819
  2. PLETAL [Suspect]
     Indication: CEREBRAL INFARCTION
     Dosage: 81 MG, QD ORAL
     Route: 048
     Dates: start: 20040819
  3. MEVALOTIN (PRAVASTATIN SODIUM) TABLET, 10 MG [Suspect]
     Indication: HYPERLIPIDAEMIA
     Dosage: 10 MG, QD; ORAL
     Route: 048
     Dates: start: 20040809
  4. BLOPRESS (CANDESARTAN CILEXETIL) TABLET [Suspect]
     Indication: HYPERTENSION
     Dosage: 12 MG, QD; ORAL
     Route: 048
     Dates: start: 20040813
  5. MAGNESIUM OXIDE (MAGNESIUM OXIDE) POWDER (EXCEPT [DPO[), .5 G [Suspect]
     Indication: CONSTIPATION
     Dosage: 0.5 G, BID; ORAL
     Route: 048
     Dates: start: 20040901
  6. AMLODIN (AMLODIPINE BESILATE) TABLET, 5 MG [Suspect]
     Indication: HYPERTENSION
     Dosage: 10 MG, QD; ORAL
     Route: 048
     Dates: start: 20050203
  7. ZYLORIC (ALLOPURINOL) TABLET, 100 MG [Suspect]
     Indication: HYPERURICAEMIA
     Dosage: 100 MG, BID; ORAL
     Route: 048
     Dates: start: 20051013
  8. LASIX [Suspect]
     Indication: HYPERURICAEMIA
     Dosage: 20 MG, QD; ORAL
     Route: 048
     Dates: start: 20060425

REACTIONS (2)
  - CATARACT [None]
  - CONDITION AGGRAVATED [None]
